FAERS Safety Report 8631293 (Version 3)
Quarter: 2012Q4

REPORT INFORMATION
  Report Type: 
  Country: FR (occurrence: FR)
  Receive Date: 20120622
  Receipt Date: 20121119
  Transmission Date: 20130627
  Serious: Yes (Death, Hospitalization)
  Sender: FDA-Public Use
  Company Number: FR-ACTELION-A-CH2012-67420

PATIENT
  Age: 40 Year
  Sex: Male
  Weight: 60 kg

DRUGS (9)
  1. TRACLEER [Suspect]
     Indication: DIGITAL ULCER
     Dosage: 125 mg, bid
     Route: 048
     Dates: start: 201007, end: 20120705
  2. TRACLEER [Suspect]
     Dosage: 62.5 mg, bid
     Route: 048
     Dates: start: 201007, end: 201007
  3. CELLCEPT [Suspect]
  4. ENDOXAN [Concomitant]
     Dosage: UNK
     Dates: start: 2010
  5. EUPANTOL [Concomitant]
     Dosage: UNK
     Dates: start: 200901
  6. CORTANCYL [Concomitant]
     Indication: SCLERODERMA
     Dosage: UNK
     Dates: start: 200901
  7. COZAAR [Concomitant]
     Indication: CARDIAC FAILURE
     Dosage: UNK
     Dates: start: 200901, end: 2010
  8. ATACAND [Concomitant]
     Indication: CARDIAC FAILURE
     Dosage: UNK
     Dates: start: 2010
  9. GAVISCON [Concomitant]
     Dosage: UNK
     Dates: start: 200901

REACTIONS (17)
  - Cardio-respiratory arrest [Fatal]
  - Myocardial infarction [Fatal]
  - Arrhythmia [Fatal]
  - Cardioversion [Fatal]
  - Brain death [Fatal]
  - Brain hypoxia [Fatal]
  - Electroencephalogram abnormal [Fatal]
  - Cerebral hypoperfusion [Fatal]
  - Coma [Fatal]
  - Bronchopulmonary aspergillosis [Unknown]
  - Productive cough [Unknown]
  - Pyrexia [Unknown]
  - Skin ulcer [Unknown]
  - Condition aggravated [Unknown]
  - Transaminases increased [Unknown]
  - Aspartate aminotransferase increased [Unknown]
  - Alanine aminotransferase increased [Unknown]
